FAERS Safety Report 6168113-4 (Version None)
Quarter: 2009Q2

REPORT INFORMATION
  Report Type: 
  Country: None (occurrence: None)
  Receive Date: 20090427
  Receipt Date: 20090416
  Transmission Date: 20091009
  Serious: Yes (Hospitalization, Other)
  Sender: FDA-Public Use
  Company Number: US-PFIZER INC-2004224204US

PATIENT
  Sex: Female
  Weight: 65.77 kg

DRUGS (5)
  1. PROVERA [Suspect]
     Indication: HORMONE REPLACEMENT THERAPY
     Route: 065
     Dates: start: 19740101, end: 20030801
  2. PREMARIN [Suspect]
     Indication: HORMONE REPLACEMENT THERAPY
     Route: 065
     Dates: start: 19740101, end: 19800801
  3. ESTRACE [Suspect]
     Indication: HORMONE REPLACEMENT THERAPY
     Route: 065
     Dates: start: 19800101, end: 20030801
  4. SERTRALINE HCL [Concomitant]
     Route: 065
     Dates: start: 19960101
  5. ALPRAZOLAM [Concomitant]
     Route: 065

REACTIONS (1)
  - BREAST CANCER FEMALE [None]
